FAERS Safety Report 8432306-3 (Version None)
Quarter: 2012Q2

REPORT INFORMATION
  Report Type: 
  Country: None (occurrence: None)
  Receive Date: 20120613
  Receipt Date: 20120608
  Transmission Date: 20120825
  Serious: Yes (Hospitalization)
  Sender: FDA-Public Use
  Company Number: PHHY2012CA038387

PATIENT
  Sex: Female

DRUGS (6)
  1. ESTRADIOL [Concomitant]
  2. CALCIUM [Concomitant]
  3. CLOZARIL [Suspect]
     Indication: BIPOLAR DISORDER
     Route: 048
     Dates: start: 20120217
  4. FENOFIBRATE [Concomitant]
  5. PROVERA [Concomitant]
  6. LITHIUM [Suspect]
     Dosage: 450 MG, UNK
     Route: 048

REACTIONS (2)
  - DEHYDRATION [None]
  - HYPERCALCAEMIA [None]
